FAERS Safety Report 5361249-7 (Version None)
Quarter: 2007Q2

REPORT INFORMATION
  Report Type: 
  Country: None (occurrence: None)
  Receive Date: 20070614
  Receipt Date: 20070601
  Transmission Date: 20071010
  Serious: Yes (Life-Threatening)
  Sender: FDA-Public Use
  Company Number: 2007-00337

PATIENT
  Age: 51 Year
  Sex: Male

DRUGS (3)
  1. VELCADE [Suspect]
     Indication: MULTIPLE MYELOMA
     Dosage: 2.50 MG
     Dates: start: 20070124, end: 20070202
  2. DOXORUBICIN HCL [Suspect]
     Indication: MULTIPLE MYELOMA
     Dates: start: 20070124
  3. DEXAMETHASONE [Suspect]
     Indication: MULTIPLE MYELOMA
     Dates: start: 20070124

REACTIONS (12)
  - CEREBRAL INFARCTION [None]
  - DYSPNOEA [None]
  - ENCEPHALITIS [None]
  - EPILEPSY [None]
  - ESCHERICHIA BACTERAEMIA [None]
  - GASTRIC HAEMORRHAGE [None]
  - HEMIPARESIS [None]
  - MALAISE [None]
  - PNEUMOCOCCAL SEPSIS [None]
  - PSEUDOMONAL BACTERAEMIA [None]
  - RENAL TUBULAR NECROSIS [None]
  - RHABDOMYOLYSIS [None]
